FAERS Safety Report 9239067 (Version 3)
Quarter: 2013Q2

REPORT INFORMATION
  Report Type: Spontaneous
  Country: US (occurrence: US)
  Receive Date: 20130418
  Receipt Date: 20130530
  Transmission Date: 20140414
  Serious: Yes (Other)
  Sender: FDA-Public Use
  Company Number: US-PFIZER INC-2013120667

PATIENT
  Sex: Female

DRUGS (2)
  1. NORVASC [Suspect]
     Dosage: UNK
     Dates: start: 20120904
  2. NORVASC [Suspect]
     Dosage: UNK

REACTIONS (1)
  - Deafness [Unknown]
